FAERS Safety Report 16033219 (Version 1)
Quarter: 2019Q1

REPORT INFORMATION
  Report Type: Spontaneous
  Country: US (occurrence: US)
  Receive Date: 20190305
  Receipt Date: 20190305
  Transmission Date: 20190418
  Serious: Yes (Other)
  Sender: FDA-Public Use
  Company Number: US-ABBVIE-19K-163-2687939-00

PATIENT
  Sex: Male

DRUGS (4)
  1. VENCLEXTA [Suspect]
     Active Substance: VENETOCLAX
     Dosage: 1 ON D1, 2 ON D2, 3 ON D3, 4 DAILY THEREAFTER
     Route: 048
  2. VENCLEXTA [Suspect]
     Active Substance: VENETOCLAX
     Dosage: 1 ON D1, 2 ON D2, 3 ON D3, 4 DAILY THEREAFTER
     Route: 048
  3. VENCLEXTA [Suspect]
     Active Substance: VENETOCLAX
     Indication: PRODUCT USED FOR UNKNOWN INDICATION
     Dosage: 1 ON D1, 2 ON D2, 3 ON D3, 4 DAILY THEREAFTER
     Route: 048
  4. VENCLEXTA [Suspect]
     Active Substance: VENETOCLAX
     Dosage: 1 ON D1, 2 ON D2, 3 ON D3, 4 DAILY THEREAFTER
     Route: 048

REACTIONS (1)
  - Neoplasm malignant [Unknown]
